FAERS Safety Report 9639407 (Version 1)
Quarter: 2013Q4

REPORT INFORMATION
  Report Type: Spontaneous
  Country: GB (occurrence: GB)
  Receive Date: 20131022
  Receipt Date: 20131022
  Transmission Date: 20140711
  Serious: Yes (Hospitalization)
  Sender: FDA-Public Use
  Company Number: PHHY2013GB115583

PATIENT
  Age: 67 Year
  Sex: Male

DRUGS (1)
  1. HEPARIN [Suspect]
     Dosage: UNK 72 HOURS

REACTIONS (8)
  - Gangrene [Recovered/Resolved]
  - Feeling hot [Unknown]
  - Oedema [Unknown]
  - Heparin-induced thrombocytopenia [Unknown]
  - Postoperative thrombosis [Unknown]
  - Skin discolouration [Unknown]
  - Pain [Unknown]
  - Blister [Unknown]
